FAERS Safety Report 24367353 (Version 1)
Quarter: 2024Q3

REPORT INFORMATION
  Report Type: Spontaneous
  Country: US (occurrence: None)
  Receive Date: 20240926
  Receipt Date: 20240926
  Transmission Date: 20241016
  Serious: No
  Sender: Public
  Company Number: None

PATIENT
  Sex: Male

DRUGS (1)
  1. TALTZ [Suspect]
     Active Substance: IXEKIZUMAB
     Indication: Psoriasis
     Dosage: 80MG EVERY 4 WQEEKS UNDER THE SKIN?
     Route: 058
     Dates: start: 202401

REACTIONS (4)
  - Pruritus [None]
  - Skin burning sensation [None]
  - Drug ineffective [None]
  - Erythema [None]
